FAERS Safety Report 9067437 (Version 2)
Quarter: 2013Q1

REPORT INFORMATION
  Report Type: Spontaneous
  Country: JP (occurrence: JP)
  Receive Date: 20130129
  Receipt Date: 20130213
  Transmission Date: 20140127
  Serious: Yes (Other)
  Sender: FDA-Public Use
  Company Number: JP-JNJFOC-20130111491

PATIENT
  Age: 31 Year
  Sex: Male

DRUGS (3)
  1. RISPERDAL [Suspect]
     Indication: SCHIZOAFFECTIVE DISORDER
     Route: 048
     Dates: start: 20040203, end: 20090806
  2. AN UNKNOWN MEDICATION [Concomitant]
     Indication: PRODUCT USED FOR UNKNOWN INDICATION
     Route: 048
  3. SODIUM VALPROATE [Concomitant]
     Route: 065
     Dates: start: 20040203

REACTIONS (2)
  - Obesity [Recovered/Resolved]
  - Increased appetite [Recovered/Resolved]
